FAERS Safety Report 7357252-8 (Version None)
Quarter: 2011Q1

REPORT INFORMATION
  Report Type: 
  Country: None (occurrence: None)
  Receive Date: 20110308
  Receipt Date: 20110223
  Transmission Date: 20110831
  Serious: Yes (Life-Threatening, Hospitalization)
  Sender: FDA-Public Use
  Company Number: IND1-AU-2011-0008

PATIENT
  Sex: Male

DRUGS (1)
  1. INDOMETHACIN [Suspect]
     Indication: PATENT DUCTUS ARTERIOSUS
     Dosage: 0.1 MG/KG

REACTIONS (4)
  - OFF LABEL USE [None]
  - HYPOTENSION [None]
  - DRUG INEFFECTIVE [None]
  - DIASTOLIC DYSFUNCTION [None]
